FAERS Safety Report 10300624 (Version 2)
Quarter: 2018Q2

REPORT INFORMATION
  Report Type: Report from Study
  Country: US (occurrence: US)
  Receive Date: 20140714
  Receipt Date: 20180523
  Transmission Date: 20180711
  Serious: Yes (Other)
  Sender: FDA-Public Use
  Company Number: US-ROCHE-1431178

PATIENT
  Age: 8 Year
  Sex: Female
  Weight: 24.7 kg

DRUGS (12)
  1. VASOTEC [Concomitant]
     Active Substance: ENALAPRIL MALEATE
     Dosage: 1 MG/ML
     Route: 065
  2. ZOFRAN [Concomitant]
     Active Substance: ONDANSETRON HYDROCHLORIDE
     Dosage: 4 MG
     Route: 065
  3. TYLENOL [Concomitant]
     Active Substance: ACETAMINOPHEN
     Route: 048
  4. ROCALTROL [Concomitant]
     Active Substance: CALCITRIOL
     Dosage: 1 MCG/ML
     Route: 065
  5. EPOGEN [Concomitant]
     Active Substance: ERYTHROPOIETIN
     Dosage: 2000 UNITS/ML
     Route: 065
  6. RENVELA [Concomitant]
     Active Substance: SEVELAMER CARBONATE
     Route: 065
  7. FERROUS SULFATE. [Concomitant]
     Active Substance: FERROUS SULFATE
     Dosage: 15 MG/ 1.5ML
     Route: 065
  8. NUTROPIN AQ [Suspect]
     Active Substance: SOMATROPIN
     Indication: CHRONIC KIDNEY DISEASE
     Route: 058
  9. NUTROPIN AQ [Suspect]
     Active Substance: SOMATROPIN
     Route: 058
  10. BICITRA [Concomitant]
     Active Substance: CITRIC ACID, 1-STEARYL ESTER\SODIUM CITRATE
     Dosage: 500-334 MG/ 5ML
     Route: 065
  11. NUTROPIN AQ [Suspect]
     Active Substance: SOMATROPIN
     Route: 058
  12. PERIACTIN [Concomitant]
     Active Substance: CYPROHEPTADINE HYDROCHLORIDE
     Dosage: 2 MG/ 5ML
     Route: 065

REACTIONS (11)
  - Blood creatinine increased [Unknown]
  - Viral infection [Unknown]
  - Red blood cell count decreased [Unknown]
  - Haematocrit decreased [Unknown]
  - Pectus carinatum [Unknown]
  - Proteinuria [Unknown]
  - Blood urea increased [Unknown]
  - Haemoglobin decreased [Unknown]
  - Vitamin D deficiency [Unknown]
  - Appetite disorder [Unknown]
  - Enuresis [Unknown]

NARRATIVE: CASE EVENT DATE: 20170126
